FAERS Safety Report 10650807 (Version 1)
Quarter: 2014Q4

REPORT INFORMATION
  Report Type: Spontaneous
  Country: FR (occurrence: FR)
  Receive Date: 20141215
  Receipt Date: 20141215
  Transmission Date: 20150529
  Serious: Yes (Hospitalization)
  Sender: FDA-Public Use
  Company Number: PHHY2014FR159585

PATIENT
  Age: 87 Year
  Sex: Female

DRUGS (5)
  1. PRAVASTATINE NA [Suspect]
     Active Substance: PRAVASTATIN SODIUM
     Indication: DYSLIPIDAEMIA
     Dosage: 20 MG, QD
     Route: 048
     Dates: end: 20141021
  2. ESIDREX [Suspect]
     Active Substance: HYDROCHLOROTHIAZIDE
     Indication: HYPERTENSION
     Dosage: UNK
     Route: 048
     Dates: end: 20140822
  3. DIFFU K [Suspect]
     Active Substance: POTASSIUM CHLORIDE
     Indication: HYPOKALAEMIA
     Dosage: 600 MG, QD
     Route: 048
     Dates: end: 20141022
  4. ESIDREX [Suspect]
     Active Substance: HYDROCHLOROTHIAZIDE
     Dosage: 25 MG, QD
     Route: 048
     Dates: start: 20141017, end: 20141021
  5. LERCANIDIPINE [Suspect]
     Active Substance: LERCANIDIPINE
     Indication: HYPERTENSION
     Dosage: 20 MG, QD
     Route: 048
     Dates: end: 20141021

REACTIONS (11)
  - Confusional state [Recovered/Resolved]
  - Electrocardiogram QRS complex shortened [None]
  - Disturbance in attention [None]
  - Somnolence [None]
  - Ventricular extrasystoles [None]
  - Hyponatraemia [Recovered/Resolved]
  - Activities of daily living impaired [None]
  - Road traffic accident [None]
  - Hypokalaemia [Recovered/Resolved]
  - Gait disturbance [None]
  - Psychomotor retardation [None]

NARRATIVE: CASE EVENT DATE: 20141022
